FAERS Safety Report 5306593-4 (Version None)
Quarter: 2007Q2

REPORT INFORMATION
  Report Type: 
  Country: None (occurrence: None)
  Receive Date: 20070418
  Receipt Date: 20070404
  Transmission Date: 20071010
  Serious: Yes (Death, Hospitalization)
  Sender: FDA-Public Use
  Company Number: 2007JP000676

PATIENT
  Age: 92 Year
  Sex: Female
  Weight: 38.7 kg

DRUGS (8)
  1. VESICARE [Suspect]
     Indication: POLLAKIURIA
     Dosage: 5 MG, UID/QD, ORAL
     Route: 048
     Dates: start: 20070114, end: 20070216
  2. DEPAS (ETIZOLAM) TABLET [Concomitant]
  3. LASIX [Concomitant]
  4. MAGLAX (MAGNESIUM OXIDE) TABLET [Concomitant]
  5. BLADDERON (FLAVOXATE HYDROCHLORIDE) TABLET [Concomitant]
  6. MOBIC [Concomitant]
  7. NU-LOTAN (LOSARTAN POTASSIUM) TABLET [Concomitant]
  8. FAMOTIDINE TABLET [Concomitant]

REACTIONS (17)
  - ACUTE MYOCARDIAL INFARCTION [None]
  - ALANINE AMINOTRANSFERASE INCREASED [None]
  - ASPARTATE AMINOTRANSFERASE INCREASED [None]
  - ATRIOVENTRICULAR BLOCK [None]
  - BRADYCARDIA [None]
  - CARDIAC ARREST [None]
  - DECREASED APPETITE [None]
  - DUODENAL ULCER HAEMORRHAGE [None]
  - DYSURIA [None]
  - EARLY MORNING AWAKENING [None]
  - FEELING ABNORMAL [None]
  - GAIT DISTURBANCE [None]
  - GAMMA-GLUTAMYLTRANSFERASE INCREASED [None]
  - GENERAL PHYSICAL HEALTH DETERIORATION [None]
  - PYREXIA [None]
  - RESPIRATORY ARREST [None]
  - VOMITING [None]
